FAERS Safety Report 21263963 (Version 2)
Quarter: 2022Q3

REPORT INFORMATION
  Report Type: Spontaneous
  Country: FR (occurrence: FR)
  Receive Date: 20220829
  Receipt Date: 20220921
  Transmission Date: 20221027
  Serious: Yes (Other)
  Sender: FDA-Public Use
  Company Number: None

PATIENT
  Age: 51 Year
  Sex: Female

DRUGS (1)
  1. VIMPAT [Suspect]
     Active Substance: LACOSAMIDE
     Indication: Epilepsy
     Dosage: 300 MG A DAY
     Route: 048
     Dates: start: 20170208, end: 20210815

REACTIONS (11)
  - Epicondylitis [Recovered/Resolved]
  - Withdrawal syndrome [Recovered/Resolved]
  - Arrhythmia [Unknown]
  - Exostosis [Recovering/Resolving]
  - Mental fatigue [Not Recovered/Not Resolved]
  - Gastrointestinal disorder [Recovered/Resolved]
  - Trance [Recovered/Resolved]
  - Vision blurred [Not Recovered/Not Resolved]
  - Myoclonus [Recovered/Resolved]
  - Muscle spasms [Recovered/Resolved]
  - Dizziness [Recovered/Resolved]

NARRATIVE: CASE EVENT DATE: 20180101
